FAERS Safety Report 4577315-X (Version None)
Quarter: 2005Q1

REPORT INFORMATION
  Report Type: 
  Country: None (occurrence: None)
  Receive Date: 20050210
  Receipt Date: 20050202
  Transmission Date: 20050727
  Serious: Yes (Life-Threatening, Other)
  Sender: FDA-Public Use
  Company Number: US-GLAXOSMITHKLINE-A0543448A

PATIENT
  Age: 33 Year
  Sex: Female
  Weight: 61 kg

DRUGS (5)
  1. NICORETTE [Suspect]
     Route: 002
     Dates: start: 20050201, end: 20050201
  2. ECOTRIN ADULT LOW STRENGTH TABLETS [Concomitant]
     Route: 048
     Dates: start: 20040601
  3. LEVOTHROID [Concomitant]
     Indication: THYROID DISORDER
     Route: 048
  4. PLAQUENIL [Concomitant]
     Route: 048
  5. ZOLOFT [Concomitant]
     Route: 048

REACTIONS (2)
  - DYSPNOEA [None]
  - THROAT TIGHTNESS [None]
